FAERS Safety Report 5311234-6 (Version None)
Quarter: 2007Q2

REPORT INFORMATION
  Report Type: 
  Country: None (occurrence: None)
  Receive Date: 20070430
  Receipt Date: 20070420
  Transmission Date: 20071010
  Serious: Yes (Other)
  Sender: FDA-Public Use
  Company Number: PHEH2007US06107

PATIENT
  Age: 58 Year
  Sex: Female

DRUGS (1)
  1. PAMIDRONATE DISODIUM [Suspect]
     Dates: end: 20060101

REACTIONS (2)
  - OSTEONECROSIS [None]
  - WOUND [None]
